FAERS Safety Report 10729660 (Version 1)
Quarter: 2015Q1

REPORT INFORMATION
  Report Type: Spontaneous
  Country: GB (occurrence: GB)
  Receive Date: 20150122
  Receipt Date: 20150122
  Transmission Date: 20150721
  Serious: Yes (Other)
  Sender: FDA-Public Use
  Company Number: GB-009507513-1411GBR008518

PATIENT
  Age: 17 Year
  Sex: Female
  Weight: 62.7 kg

DRUGS (1)
  1. IMPLANON [Suspect]
     Active Substance: ETONOGESTREL
     Indication: CONTRACEPTION
     Dosage: UNK
     Route: 059
     Dates: start: 20141014, end: 201410

REACTIONS (7)
  - Implant site pain [Recovered/Resolved]
  - Implant site swelling [Recovered/Resolved]
  - Wound infection staphylococcal [Recovered/Resolved]
  - Device related infection [Recovered/Resolved]
  - Implant site erythema [Recovered/Resolved]
  - Eczema [Recovered/Resolved]
  - Implant site induration [Recovered/Resolved]

NARRATIVE: CASE EVENT DATE: 201410
